FAERS Safety Report 5731607-7 (Version None)
Quarter: 2008Q2

REPORT INFORMATION
  Report Type: 
  Country: None (occurrence: None)
  Receive Date: 20080508
  Receipt Date: 20080428
  Transmission Date: 20081010
  Serious: Yes (Other)
  Sender: FDA-Public Use
  Company Number: US-JNJFOC-20080407812

PATIENT
  Sex: Female
  Weight: 77.11 kg

DRUGS (4)
  1. TOPAMAX [Suspect]
     Route: 048
  2. TOPAMAX [Suspect]
     Indication: MIGRAINE PROPHYLAXIS
     Route: 048
  3. LEVOXYL [Concomitant]
     Indication: HYPOTHYROIDISM
  4. CRESTOR [Concomitant]
     Indication: BLOOD CHOLESTEROL INCREASED

REACTIONS (3)
  - ABNORMAL SENSATION IN EYE [None]
  - EYE PAIN [None]
  - HEART RATE IRREGULAR [None]
